FAERS Safety Report 15053261 (Version 1)
Quarter: 2018Q2

REPORT INFORMATION
  Report Type: Spontaneous
  Country: JP (occurrence: JP)
  Receive Date: 20180622
  Receipt Date: 20180622
  Transmission Date: 20180711
  Serious: Yes (Other)
  Sender: FDA-Public Use
  Company Number: JP-PFIZER INC-2018230349

PATIENT
  Age: 31 Year
  Sex: Male

DRUGS (4)
  1. CELECOX [Suspect]
     Active Substance: CELECOXIB
     Indication: LUMBAR HERNIA
     Dosage: 100 MG, 2X/DAY
     Route: 048
     Dates: start: 201803, end: 201805
  2. TRAMAL [Concomitant]
     Active Substance: TRAMADOL
     Dosage: UNK UNK, UNKNOWN FREQ.
     Route: 048
     Dates: end: 201803
  3. EPERISONE HYDROCHLORIDE [Concomitant]
     Active Substance: EPERISONE HYDROCHLORIDE
     Indication: BACK PAIN
     Dosage: 50 MG, 2X/DAY
     Route: 065
  4. EPERISONE HYDROCHLORIDE [Concomitant]
     Active Substance: EPERISONE HYDROCHLORIDE
     Indication: LUMBAR HERNIA

REACTIONS (1)
  - Sleep apnoea syndrome [Recovered/Resolved]

NARRATIVE: CASE EVENT DATE: 201803
